FAERS Safety Report 4757367-4 (Version None)
Quarter: 2005Q3

REPORT INFORMATION
  Report Type: 
  Country: None (occurrence: None)
  Receive Date: 20050831
  Receipt Date: 20050822
  Transmission Date: 20060218
  Serious: Yes (Hospitalization)
  Sender: FDA-Public Use
  Company Number: US-JNJFOC-20050805414

PATIENT
  Age: 10 Year
  Sex: Male

DRUGS (3)
  1. CONCERTA [Suspect]
     Indication: ATTENTION DEFICIT/HYPERACTIVITY DISORDER
  2. ABILIFY [Concomitant]
  3. THYROID TAB [Concomitant]

REACTIONS (2)
  - FEELING HOT [None]
  - HOSPITALISATION [None]
